FAERS Safety Report 23117324 (Version 3)
Quarter: 2024Q2

REPORT INFORMATION
  Report Type: Spontaneous
  Country: JP (occurrence: JP)
  Receive Date: 20231027
  Receipt Date: 20240405
  Transmission Date: 20240715
  Serious: Yes (Hospitalization)
  Sender: FDA-Public Use
  Company Number: JP-Eisai-202306272_LEN-RCC_P_1

PATIENT
  Sex: Male

DRUGS (6)
  1. LENVIMA [Suspect]
     Active Substance: LENVATINIB
     Indication: Metastatic renal cell carcinoma
     Dosage: WEEKDAY-ON AND WEEKEND-OFF (5 DAYS-ON AND 2 DAYS-OFF) SCHEDULE
     Route: 048
     Dates: start: 20230808, end: 20230830
  2. LENVIMA [Suspect]
     Active Substance: LENVATINIB
     Route: 048
     Dates: start: 20230909, end: 20230911
  3. LENVIMA [Suspect]
     Active Substance: LENVATINIB
     Dosage: 5 DAYS-ON AND 2 DAYS-OFF SCHEDULE
     Route: 048
     Dates: start: 20230912, end: 202312
  4. KEYTRUDA [Suspect]
     Active Substance: PEMBROLIZUMAB
     Indication: Metastatic renal cell carcinoma
     Route: 042
     Dates: start: 20230808, end: 202311
  5. OPIUM [Suspect]
     Active Substance: OPIUM
     Indication: Cancer pain
     Dosage: DOSE AND FREQUENCY UNKNOWN
     Route: 065
  6. OPIUM [Suspect]
     Active Substance: OPIUM
     Dosage: DOSE INCREASED (DOSE AND FREQUENCY UNKNOWN).
     Route: 065

REACTIONS (3)
  - Malaise [Recovering/Resolving]
  - Vomiting [Recovering/Resolving]
  - Hypertension [Recovering/Resolving]

NARRATIVE: CASE EVENT DATE: 20230801
